FAERS Safety Report 9778583 (Version 1)
Quarter: 2013Q4

REPORT INFORMATION
  Report Type: Spontaneous
  Country: US (occurrence: None)
  Receive Date: 20131220
  Receipt Date: 20131220
  Transmission Date: 20140711
  Serious: Yes (Hospitalization)
  Sender: FDA-Public Use
  Company Number: None

PATIENT
  Age: 89 Year
  Sex: Male
  Weight: 68.6 kg

DRUGS (1)
  1. SPIRONOLACTONE [Suspect]
     Indication: CARDIAC FAILURE CONGESTIVE
     Route: 048
     Dates: start: 20130305, end: 20130408

REACTIONS (6)
  - Blood potassium increased [None]
  - Electrocardiogram T wave peaked [None]
  - Chest pain [None]
  - Hyperhidrosis [None]
  - Tachycardia [None]
  - Dyspnoea [None]
